FAERS Safety Report 18916379 (Version 2)
Quarter: 2021Q1

REPORT INFORMATION
  Report Type: Spontaneous
  Country: DE (occurrence: DE)
  Receive Date: 20210219
  Receipt Date: 20210317
  Transmission Date: 20210420
  Serious: Yes (Other)
  Sender: FDA-Public Use
  Company Number: DE-REGENERON PHARMACEUTICALS, INC.-2021-15632

PATIENT

DRUGS (1)
  1. EYLEA [Suspect]
     Active Substance: AFLIBERCEPT
     Indication: RETINAL VEIN OCCLUSION
     Dosage: 1 DF, ONCE, RIGHT EYE, FIRST INJECTION OF EYLEA, DOSAGE NOT PROVIDED
     Route: 031
     Dates: start: 20210104, end: 20210104

REACTIONS (1)
  - Anterior chamber flare [Recovered/Resolved]

NARRATIVE: CASE EVENT DATE: 20210112
